FAERS Safety Report 14397863 (Version 27)
Quarter: 2019Q2

REPORT INFORMATION
  Report Type: Report from Study
  Country: US (occurrence: US)
  Receive Date: 20180116
  Receipt Date: 20190621
  Transmission Date: 20190711
  Serious: Yes (Life-Threatening, Hospitalization)
  Sender: FDA-Public Use
  Company Number: US-ACTELION-A-NJ2017-155321

PATIENT
  Age: 68 Year
  Sex: Female
  Weight: 65.76 kg

DRUGS (44)
  1. ZOLOFT [Concomitant]
     Active Substance: SERTRALINE HYDROCHLORIDE
     Dosage: UNK
     Dates: start: 20170111
  2. PROCRIT [Concomitant]
     Active Substance: ERYTHROPOIETIN
  3. TYLENOL [Concomitant]
     Active Substance: ACETAMINOPHEN
     Dosage: UNK
     Dates: start: 20190409
  4. SILDENAFIL CITRATE. [Concomitant]
     Active Substance: SILDENAFIL CITRATE
  5. ZANAFLEX [Concomitant]
     Active Substance: TIZANIDINE HYDROCHLORIDE
     Dosage: UNK
     Dates: start: 20170111
  6. ALLOPURINOL. [Concomitant]
     Active Substance: ALLOPURINOL
     Dosage: UNK
     Dates: start: 20190409
  7. ZOSYN [Concomitant]
     Active Substance: PIPERACILLIN SODIUM\TAZOBACTAM SODIUM
  8. VELETRI [Suspect]
     Active Substance: EPOPROSTENOL
     Dosage: 25 NG/KG, PER MIN
     Route: 042
  9. VELETRI [Suspect]
     Active Substance: EPOPROSTENOL
     Dosage: 18 NG/KG, PER MIN
     Route: 042
  10. ZYRTEC [Concomitant]
     Active Substance: CETIRIZINE HYDROCHLORIDE
     Dosage: UNK
     Dates: start: 20170111
  11. LEVOTHYROXINE. [Concomitant]
     Active Substance: LEVOTHYROXINE
     Dosage: UNK
     Dates: start: 20170111
  12. OMEPRAZOLE. [Concomitant]
     Active Substance: OMEPRAZOLE
     Dosage: UNK
     Dates: start: 20170111
  13. ROPINIROLE. [Concomitant]
     Active Substance: ROPINIROLE
     Dosage: UNK
     Dates: start: 20170227
  14. CYCLOBENZAPRINE. [Concomitant]
     Active Substance: CYCLOBENZAPRINE
     Dosage: UNK
     Dates: start: 20190514
  15. CHLOROTHIAZIDE. [Concomitant]
     Active Substance: CHLOROTHIAZIDE
     Dosage: UNK
     Dates: start: 20170111
  16. LORATADINE. [Concomitant]
     Active Substance: LORATADINE
     Dosage: UNK
     Dates: start: 20170111
  17. LORAZEPAM. [Concomitant]
     Active Substance: LORAZEPAM
     Dosage: UNK
     Dates: start: 20170111
  18. ACETAMINOPHEN. [Concomitant]
     Active Substance: ACETAMINOPHEN
     Dosage: UNK
     Dates: start: 20170227
  19. ONDANSETRON [Concomitant]
     Active Substance: ONDANSETRON
     Dosage: UNK
     Dates: start: 20170227
  20. ALDACTONE [Concomitant]
     Active Substance: SPIRONOLACTONE
     Dosage: UNK
     Dates: start: 20190409
  21. DIPHENHYDRAMINE. [Concomitant]
     Active Substance: DIPHENHYDRAMINE
     Dosage: UNK
     Dates: start: 20190514
  22. OPSUMIT [Suspect]
     Active Substance: MACITENTAN
     Indication: PULMONARY ARTERIAL HYPERTENSION
     Dosage: 10 MG, QD
     Route: 048
     Dates: start: 20161229
  23. ELIQUIS [Concomitant]
     Active Substance: APIXABAN
     Dosage: UNK
     Dates: start: 20170111
  24. OXYGEN. [Concomitant]
     Active Substance: OXYGEN
     Dosage: 3 L/MIN, UNK
  25. BUMEX [Concomitant]
     Active Substance: BUMETANIDE
     Dosage: UNK
     Dates: start: 20170111
  26. DUONEB [Concomitant]
     Active Substance: ALBUTEROL SULFATE\IPRATROPIUM BROMIDE
     Dosage: UNK
     Dates: start: 20170111
  27. METOLAZONE. [Concomitant]
     Active Substance: METOLAZONE
     Dosage: UNK
     Dates: start: 20170111
  28. OXYCODONE [Concomitant]
     Active Substance: OXYCODONE
  29. VITAMIN D3 [Concomitant]
     Active Substance: CHOLECALCIFEROL
     Dosage: UNK
     Dates: start: 20170111
  30. ZOFRAN [Concomitant]
     Active Substance: ONDANSETRON HYDROCHLORIDE
     Dosage: UNK
     Dates: start: 20170111
  31. COLACE [Concomitant]
     Active Substance: DOCUSATE SODIUM
     Dosage: UNK
     Dates: start: 20190514
  32. VELETRI [Suspect]
     Active Substance: EPOPROSTENOL
     Dosage: 26 NG/KG, PER MIN
     Route: 042
  33. VELETRI [Suspect]
     Active Substance: EPOPROSTENOL
     Dosage: 20 NG/KG, PER MIN
     Route: 042
  34. OXYGEN. [Concomitant]
     Active Substance: OXYGEN
     Dosage: 6-7 L/MIN, UNK
  35. POTASSIUM CHLORIDE. [Concomitant]
     Active Substance: POTASSIUM CHLORIDE
     Dosage: UNK
     Dates: start: 20170111
  36. PANTOPRAZOLE [Concomitant]
     Active Substance: PANTOPRAZOLE
     Dosage: UNK
     Dates: start: 20170227
  37. FERROUS SULFATE. [Concomitant]
     Active Substance: FERROUS SULFATE
     Dosage: UNK
     Dates: start: 20190409
  38. VELETRI [Suspect]
     Active Substance: EPOPROSTENOL
     Indication: PULMONARY ARTERIAL HYPERTENSION
     Dosage: 18 NG/KG, PER MIN
     Route: 042
  39. AMBIEN [Concomitant]
     Active Substance: ZOLPIDEM TARTRATE
     Dosage: UNK
     Dates: start: 20170111
  40. REQUIP [Concomitant]
     Active Substance: ROPINIROLE HYDROCHLORIDE
     Dosage: UNK
     Dates: start: 20170111
  41. SENNA [Concomitant]
     Active Substance: SENNA LEAF\SENNOSIDES\SENNOSIDES A AND B
     Dosage: UNK
     Dates: start: 20170111
  42. VENOFER [Concomitant]
     Active Substance: IRON SUCROSE
     Dosage: UNK
     Dates: start: 20170227
  43. FUROSEMIDE. [Concomitant]
     Active Substance: FUROSEMIDE
     Dosage: UNK
     Dates: start: 20190409
  44. GAS-X [Concomitant]
     Active Substance: DIMETHICONE
     Dosage: UNK
     Dates: start: 20190409

REACTIONS (57)
  - Cardiac failure [Unknown]
  - Device damage [Unknown]
  - Anaemia [Unknown]
  - Nasopharyngitis [Unknown]
  - Condition aggravated [Unknown]
  - Blood count abnormal [Unknown]
  - Acute kidney injury [Recovered/Resolved with Sequelae]
  - Pulmonary arterial hypertension [Unknown]
  - Malaise [Unknown]
  - Upper respiratory tract infection [Recovered/Resolved]
  - Orthopnoea [Recovered/Resolved]
  - Rash [Unknown]
  - Tremor [Unknown]
  - Arthritis [Unknown]
  - Magnesium deficiency [Unknown]
  - Clostridium difficile infection [Unknown]
  - Epistaxis [Recovered/Resolved with Sequelae]
  - Gastrointestinal haemorrhage [Recovered/Resolved with Sequelae]
  - Hypokalaemia [Unknown]
  - Urinary tract infection [Unknown]
  - Nausea [Unknown]
  - Pain in jaw [Unknown]
  - Complication associated with device [Unknown]
  - Fluid retention [Unknown]
  - Swelling [Unknown]
  - Bronchitis [Unknown]
  - Diarrhoea [Unknown]
  - Orthostatic hypotension [Unknown]
  - Sinusitis [Unknown]
  - Hyperkalaemia [Recovered/Resolved]
  - Blood potassium increased [Unknown]
  - Sinus disorder [Unknown]
  - Thrombosis [Unknown]
  - Oedema peripheral [Recovered/Resolved with Sequelae]
  - Dyspnoea [Unknown]
  - Blood creatinine increased [Recovered/Resolved with Sequelae]
  - Fluid overload [Unknown]
  - Weight increased [Unknown]
  - Right ventricular failure [Unknown]
  - Respiratory disorder [Recovered/Resolved]
  - Haemoptysis [Recovered/Resolved with Sequelae]
  - Waist circumference increased [Unknown]
  - Acute pulmonary oedema [Recovered/Resolved]
  - Dialysis [Unknown]
  - Abdominal discomfort [Unknown]
  - Fatigue [Recovered/Resolved]
  - Surgery [Unknown]
  - Weight decreased [Unknown]
  - Agitation [Unknown]
  - Anxiety [Unknown]
  - Asthenia [Unknown]
  - Oedema [Recovered/Resolved]
  - Cellulitis [Recovered/Resolved with Sequelae]
  - Pneumonia [Unknown]
  - Pain in extremity [Unknown]
  - Arthralgia [Unknown]
  - Back pain [Unknown]

NARRATIVE: CASE EVENT DATE: 2017
